FAERS Safety Report 4531645-6 (Version None)
Quarter: 2004Q4

REPORT INFORMATION
  Report Type: 
  Country: None (occurrence: None)
  Receive Date: 20041216
  Receipt Date: 20041216
  Transmission Date: 20050328
  Serious: Yes (Disabling)
  Sender: FDA-Public Use
  Company Number: None

PATIENT
  Sex: Female
  Weight: 93.8946 kg

DRUGS (13)
  1. VELCADE [Suspect]
     Indication: MULTIPLE MYELOMA
     Dosage: 1.3 MG/M2 IV DAYS 1,4,8,11
     Route: 042
     Dates: start: 20040512
  2. VELCADE [Suspect]
     Indication: NEOPLASM RECURRENCE
     Dosage: 1.3 MG/M2 IV DAYS 1,4,8,11
     Route: 042
     Dates: start: 20040512
  3. VELCADE [Suspect]
     Indication: MULTIPLE MYELOMA
     Dosage: 1.3 MG/M2 IV DAYS 1,4,8,11
     Route: 042
     Dates: start: 20040602
  4. VELCADE [Suspect]
     Indication: NEOPLASM RECURRENCE
     Dosage: 1.3 MG/M2 IV DAYS 1,4,8,11
     Route: 042
     Dates: start: 20040602
  5. VELCADE [Suspect]
     Indication: MULTIPLE MYELOMA
     Dosage: 1.3 MG/M2 IV DAYS 1,4,8,11
     Route: 042
     Dates: start: 20040715
  6. VELCADE [Suspect]
     Indication: NEOPLASM RECURRENCE
     Dosage: 1.3 MG/M2 IV DAYS 1,4,8,11
     Route: 042
     Dates: start: 20040715
  7. ZOMETA [Concomitant]
  8. ZOFRAN [Concomitant]
  9. ZOLOFT [Concomitant]
  10. MORPHINE [Concomitant]
  11. DECADRON [Concomitant]
  12. CALCIUM W/ VIT D [Concomitant]
  13. INSULIN [Concomitant]

REACTIONS (1)
  - EJECTION FRACTION DECREASED [None]
